FAERS Safety Report 7505178-9 (Version None)
Quarter: 2011Q2

REPORT INFORMATION
  Report Type: 
  Country: None (occurrence: None)
  Receive Date: 20110526
  Receipt Date: 20110512
  Transmission Date: 20111010
  Serious: Yes (Hospitalization, Other)
  Sender: FDA-Public Use
  Company Number: US-BAYER-201018992NA

PATIENT
  Age: 50 Year
  Sex: Female
  Weight: 78 kg

DRUGS (11)
  1. YAZ [Suspect]
     Indication: PRODUCT USED FOR UNKNOWN INDICATION
     Dosage: UNK UNK, UNK
     Route: 048
     Dates: start: 20081110, end: 20090120
  2. OXYCODONE HCL [Concomitant]
     Dosage: 5/325 MG
     Dates: start: 20060407
  3. IBUPROFEN [Concomitant]
     Dosage: 800 MG, UNK
     Dates: start: 20081201
  4. CEPHALEXIN [Concomitant]
     Dosage: 500 MG, UNK
     Dates: start: 20081201
  5. DROSPIRENONE AND ETHINYL ESTRADIOL [Suspect]
     Indication: PRODUCT USED FOR UNKNOWN INDICATION
  6. CALCIUM CARBONATE [Concomitant]
     Dosage: 600 MG, BID
     Dates: end: 20090120
  7. ASTELIN [Concomitant]
     Dosage: 137 MCG
     Dates: start: 20051031
  8. MEDROXYPROGESTERONE [Concomitant]
     Dosage: 10 MG, UNK
     Dates: start: 20080627
  9. MULTI-VITAMIN [Concomitant]
     Dosage: UNK UNK, QD
     Route: 048
     Dates: end: 20090120
  10. METRONIDAZOLE [Concomitant]
     Dosage: 500 MG, UNK
     Dates: start: 20080423
  11. VITAMIN D [Concomitant]
     Dosage: 200 U, BID
     Dates: end: 20090120

REACTIONS (1)
  - PULMONARY EMBOLISM [None]
